FAERS Safety Report 9647282 (Version 1)
Quarter: 2013Q4

REPORT INFORMATION
  Report Type: Spontaneous
  Country: US (occurrence: US)
  Receive Date: 20131027
  Receipt Date: 20131027
  Transmission Date: 20140711
  Serious: No
  Sender: FDA-Public Use
  Company Number: US-PURDUE-USA-2013-0106707

PATIENT
  Age: 62 Year
  Sex: Female

DRUGS (3)
  1. OXYCONTIN (NDA 22-272) [Suspect]
     Indication: BONE CANCER
     Dosage: 40 MG, AM
     Route: 048
  2. OXYCONTIN (NDA 22-272) [Suspect]
     Dosage: 20 MG, HS
     Route: 048
  3. ANTACID                            /00018101/ [Concomitant]
     Indication: HYPERCHLORHYDRIA
     Dosage: UNK, BID
     Route: 048
     Dates: start: 20130912

REACTIONS (6)
  - Productive cough [Not Recovered/Not Resolved]
  - Retching [Not Recovered/Not Resolved]
  - Vomiting [Not Recovered/Not Resolved]
  - Abdominal pain upper [Not Recovered/Not Resolved]
  - Product gel formation [Not Recovered/Not Resolved]
  - Nausea [Not Recovered/Not Resolved]
